FAERS Safety Report 11827394 (Version 1)
Quarter: 2015Q4

REPORT INFORMATION
  Report Type: Spontaneous
  Country: JP (occurrence: JP)
  Receive Date: 20151211
  Receipt Date: 20151211
  Transmission Date: 20160305
  Serious: Yes (Hospitalization)
  Sender: FDA-Public Use
  Company Number: JP-SUNOVION-2015SUN001175

PATIENT
  Age: 78 Year
  Sex: Female
  Weight: 35.1 kg

DRUGS (9)
  1. LYRICA [Suspect]
     Active Substance: PREGABALIN
     Indication: NEUROPATHY PERIPHERAL
     Dosage: 25 MG IN THE MORNING AND 75 HS
     Route: 048
     Dates: start: 20120625
  2. LYRICA [Suspect]
     Active Substance: PREGABALIN
     Dosage: 75 MG, HS
     Route: 048
     Dates: start: 20140926
  3. LANSOPRAZOLE. [Concomitant]
     Active Substance: LANSOPRAZOLE
     Dosage: 15 MG, QD
     Route: 048
  4. METHYCOBAL [Concomitant]
     Active Substance: METHYLCOBALAMIN
     Indication: NEUROPATHY PERIPHERAL
     Dosage: 500 MG, QD
  5. LEDERCORT [Concomitant]
     Indication: MICROSCOPIC POLYANGIITIS
     Dosage: 4 MG, QD
  6. LIPITOR [Concomitant]
     Active Substance: ATORVASTATIN CALCIUM
     Indication: HYPERLIPIDAEMIA
     Dosage: 10 MG, QD
  7. LYRICA [Suspect]
     Active Substance: PREGABALIN
     Dosage: 25 MG IN THE MORNIGN + 75 HS
     Route: 048
     Dates: start: 20150116
  8. BONALON [Concomitant]
     Active Substance: ALENDRONATE SODIUM
     Indication: OSTEOPOROSIS
     Dosage: 35 MG, QW
  9. LUNESTA [Suspect]
     Active Substance: ESZOPICLONE
     Indication: INSOMNIA
     Dosage: 1 MG, QD
     Route: 048

REACTIONS (3)
  - Femur fracture [Unknown]
  - Fall [Unknown]
  - Facial bones fracture [Recovered/Resolved]

NARRATIVE: CASE EVENT DATE: 201408
